FAERS Safety Report 4537389-9 (Version None)
Quarter: 2004Q4

REPORT INFORMATION
  Report Type: 
  Country: None (occurrence: None)
  Receive Date: 20041223
  Receipt Date: 20041216
  Transmission Date: 20050328
  Serious: Yes (Death, Life-Threatening)
  Sender: FDA-Public Use
  Company Number: DE-ABBOTT-04P-062-0284106-00

PATIENT
  Sex: Male

DRUGS (3)
  1. KLACID IV [Suspect]
     Indication: PNEUMONIA
     Route: 042
     Dates: start: 20040303, end: 20040309
  2. CEFUROXIME [Concomitant]
     Indication: PNEUMONIA
     Route: 042
     Dates: start: 20040303, end: 20040306
  3. MEROPENEM [Concomitant]
     Indication: PNEUMONIA
     Route: 042
     Dates: start: 20040307, end: 20040309

REACTIONS (7)
  - CARDIOVASCULAR DISORDER [None]
  - FUNGAL INFECTION [None]
  - HYPOVENTILATION [None]
  - PSEUDOMONAS INFECTION [None]
  - RESPIRATORY FAILURE [None]
  - SEPSIS [None]
  - SHOCK [None]
